FAERS Safety Report 6236155-6 (Version None)
Quarter: 2009Q2

REPORT INFORMATION
  Report Type: 
  Country: None (occurrence: None)
  Receive Date: 20090619
  Receipt Date: 20090609
  Transmission Date: 20091009
  Serious: Yes (Other)
  Sender: FDA-Public Use
  Company Number: GB-JNJFOC-20090603981

PATIENT
  Age: 24 Year
  Sex: Female
  Weight: 56 kg

DRUGS (8)
  1. REMICADE [Suspect]
     Indication: CROHN'S DISEASE
     Route: 042
  2. BECLOMETHASONE DIPROPIONATE [Concomitant]
  3. CETRIZINE [Concomitant]
  4. CHLORPHENIRAMINE MALEATE [Concomitant]
  5. LOPERAMIDE HYDROCHLORIDE [Concomitant]
  6. PREDNISOLONE [Concomitant]
  7. ALBUTEROL [Concomitant]
  8. SALMETEROL [Concomitant]

REACTIONS (2)
  - DRUG EXPOSURE DURING PREGNANCY [None]
  - INTRA-UTERINE DEATH [None]
